FAERS Safety Report 5340128-5 (Version None)
Quarter: 2007Q2

REPORT INFORMATION
  Report Type: 
  Country: None (occurrence: None)
  Receive Date: 20070525
  Receipt Date: 20070525
  Transmission Date: 20071010
  Serious: Yes (Hospitalization)
  Sender: FDA-Public Use
  Company Number: None

PATIENT
  Age: 77 Year
  Sex: Female
  Weight: 65 kg

DRUGS (8)
  1. LISINOPRIL [Suspect]
     Indication: HYPERTENSION
     Dosage: PO
     Route: 048
  2. DICLOFENAC [Suspect]
     Indication: NECK PAIN
     Dosage: PO
     Route: 048
  3. NAMENDA [Concomitant]
  4. VOLTAREN [Concomitant]
  5. ZESTRIL [Concomitant]
  6. LYRICA [Concomitant]
  7. ZOLOFT [Concomitant]
  8. DARVOCET [Concomitant]

REACTIONS (5)
  - ACIDOSIS [None]
  - AZOTAEMIA [None]
  - CONFUSIONAL STATE [None]
  - DEHYDRATION [None]
  - RENAL FAILURE ACUTE [None]
